FAERS Safety Report 11001215 (Version 1)
Quarter: 2015Q2

REPORT INFORMATION
  Report Type: Spontaneous
  Country: US (occurrence: US)
  Receive Date: 20150408
  Receipt Date: 20150408
  Transmission Date: 20150821
  Serious: No
  Sender: FDA-Public Use
  Company Number: US-SA-2015SA001534

PATIENT
  Sex: Female

DRUGS (1)
  1. ALLEGRA [Suspect]
     Active Substance: FEXOFENADINE HYDROCHLORIDE
     Route: 048

REACTIONS (5)
  - Rhinorrhoea [Unknown]
  - Ocular discomfort [Unknown]
  - Productive cough [Unknown]
  - Nasopharyngitis [Unknown]
  - Sneezing [Unknown]
